FAERS Safety Report 11313545 (Version 1)
Quarter: 2015Q3

REPORT INFORMATION
  Report Type: Spontaneous
  Country: RU (occurrence: RU)
  Receive Date: 20150727
  Receipt Date: 20150727
  Transmission Date: 20151125
  Serious: Yes (Life-Threatening)
  Sender: FDA-Public Use
  Company Number: RU-TEVA-581489ISR

PATIENT
  Age: 26 Year
  Sex: Female

DRUGS (1)
  1. CISPLATIN-TEVA [Suspect]
     Active Substance: CISPLATIN
     Route: 042

REACTIONS (1)
  - Pancytopenia [Recovered/Resolved]
